FAERS Safety Report 4718790-7 (Version None)
Quarter: 2005Q3

REPORT INFORMATION
  Report Type: 
  Country: None (occurrence: None)
  Receive Date: 20050719
  Receipt Date: 20050104
  Transmission Date: 20060218
  Serious: Yes (Other)
  Sender: FDA-Public Use
  Company Number: 2005004595

PATIENT
  Age: 65 Year
  Sex: Female
  Weight: 63.5036 kg

DRUGS (13)
  1. CELEBREX [Suspect]
     Indication: ARTHRITIS
     Dosage: 200 MG (200 MG, 1 IN 1 D) , ORAL
     Route: 048
     Dates: start: 20040103, end: 20040103
  2. QUININE SULFATE [Concomitant]
  3. ESTROPIPATE [Concomitant]
  4. GUANFACINE HYDROCHLORIDE (GUANFACINE HYDROCHLORIDE) [Concomitant]
  5. DIGOXIN [Concomitant]
  6. RABEPRAZOLE SODIUM [Concomitant]
  7. SIMVASTATIN [Concomitant]
  8. CALCIUM (CALCIUM) [Concomitant]
  9. TOCOPHEROL (TOCOPHEROL) [Concomitant]
  10. FOLIC ACID [Concomitant]
  11. POTASSIUM (POTASSIUM) [Concomitant]
  12. ASCORBIC ACID [Concomitant]
  13. CONJUGATED ESTROGENS [Concomitant]

REACTIONS (6)
  - DIFFICULTY IN WALKING [None]
  - ERYTHEMA [None]
  - EYE SWELLING [None]
  - SKIN DISORDER [None]
  - SWELLING FACE [None]
  - SWOLLEN TONGUE [None]
